FAERS Safety Report 16535162 (Version 1)
Quarter: 2019Q3

REPORT INFORMATION
  Report Type: Spontaneous
  Country: GB (occurrence: GB)
  Receive Date: 20190705
  Receipt Date: 20190705
  Transmission Date: 20191004
  Serious: Yes (Other)
  Sender: FDA-Public Use
  Company Number: GB-DSJP-DSE-2019-123637

PATIENT

DRUGS (1)
  1. LIXIANA [Suspect]
     Active Substance: EDOXABAN TOSYLATE
     Indication: MITRAL VALVE PROLAPSE
     Dosage: 60 MG, QD
     Route: 048
     Dates: start: 2018

REACTIONS (6)
  - Haemorrhoids [Unknown]
  - Oropharyngeal pain [Unknown]
  - Rash [Unknown]
  - Increased viscosity of upper respiratory secretion [Unknown]
  - Haemorrhage [Unknown]
  - Abscess [Unknown]
